FAERS Safety Report 9565653 (Version 1)
Quarter: 2013Q3

REPORT INFORMATION
  Report Type: Spontaneous
  Country: JP (occurrence: JP)
  Receive Date: 20130930
  Receipt Date: 20130930
  Transmission Date: 20140515
  Serious: Yes (Hospitalization)
  Sender: FDA-Public Use
  Company Number: JP-PFIZER INC-2013279628

PATIENT
  Age: 7 Decade
  Sex: Female

DRUGS (6)
  1. CELECOX [Suspect]
     Indication: PROCEDURAL PAIN
     Dosage: 200 MG, 1X/DAY
     Route: 048
     Dates: start: 20130910, end: 20130910
  2. CELECOX [Suspect]
     Dosage: 200 MG, 1X/DAY
     Route: 048
     Dates: start: 20130911, end: 20130911
  3. PARIET [Concomitant]
     Indication: GASTROOESOPHAGEAL REFLUX DISEASE
     Dosage: UNK
     Route: 048
  4. FEMARA [Concomitant]
     Indication: BREAST CANCER
     Dosage: UNK
  5. BARACLUDE [Concomitant]
     Indication: CHRONIC HEPATITIS B
     Dosage: UNK
  6. FENTANYL [Concomitant]
     Dosage: UNK
     Dates: start: 20130906

REACTIONS (1)
  - Chills [Recovered/Resolved]
